FAERS Safety Report 8711405 (Version 2)
Quarter: 2014Q1

REPORT INFORMATION
  Report Type: Report from Study
  Country: AU (occurrence: AU)
  Receive Date: 20120807
  Receipt Date: 20140219
  Transmission Date: 20141002
  Serious: Yes (Other)
  Sender: FDA-Public Use
  Company Number: AU-ROCHE-1088296

PATIENT
  Age: 54 Year
  Sex: Female

DRUGS (14)
  1. ACTEMRA [Suspect]
     Indication: RHEUMATOID ARTHRITIS
     Route: 042
     Dates: start: 20120322, end: 20130816
  2. ASTRIX [Concomitant]
     Route: 065
  3. MONOPLUS [Concomitant]
     Dosage: 20/1.5 MG
     Route: 065
  4. NORSPAN (AUSTRALIA) [Concomitant]
     Route: 065
  5. NORSPAN (AUSTRALIA) [Concomitant]
     Route: 065
  6. VENTOLIN INHALER [Concomitant]
     Route: 065
  7. SYMBICORT [Concomitant]
     Dosage: 200MCG/ 6MCG
     Route: 065
  8. ENDONE [Concomitant]
     Route: 065
  9. PREDNISOLONE [Concomitant]
     Route: 065
  10. PLAQUENIL [Concomitant]
     Route: 065
  11. PARIET [Concomitant]
     Route: 065
  12. METHOTREXATE [Concomitant]
     Route: 065
  13. MEGAFOL [Concomitant]
     Route: 065
  14. PARACETAMOL [Concomitant]
     Route: 065

REACTIONS (6)
  - Herpes zoster [Recovered/Resolved]
  - Oedema peripheral [Unknown]
  - Dyspnoea exertional [Unknown]
  - Weight increased [Unknown]
  - Ill-defined disorder [Unknown]
  - Nausea [Unknown]
